FAERS Safety Report 9448142 (Version 1)
Quarter: 2013Q3

REPORT INFORMATION
  Report Type: Spontaneous
  Country: US (occurrence: US)
  Receive Date: 20130808
  Receipt Date: 20130808
  Transmission Date: 20140515
  Serious: Yes (Hospitalization)
  Sender: FDA-Public Use
  Company Number: US-TARO PHARMACEUTICALS U.S.A., INC-2013SUN04458

PATIENT
  Age: 61 Year
  Sex: Male

DRUGS (1)
  1. WARFARIN [Suspect]
     Indication: DRUG DISPENSING ERROR
     Dosage: 5 MG, BID
     Route: 048

REACTIONS (5)
  - Drug dispensing error [Unknown]
  - Accidental overdose [None]
  - International normalised ratio increased [Recovering/Resolving]
  - Haematuria [Unknown]
  - Epistaxis [Unknown]
